FAERS Safety Report 22171493 (Version 2)
Quarter: 2023Q2

REPORT INFORMATION
  Report Type: Spontaneous
  Country: US (occurrence: US)
  Receive Date: 20230404
  Receipt Date: 20230530
  Transmission Date: 20230721
  Serious: Yes (Hospitalization)
  Sender: FDA-Public Use
  Company Number: US-AMGEN-USASP2023054554

PATIENT
  Age: 65 Year
  Sex: Female

DRUGS (2)
  1. PROLIA [Suspect]
     Active Substance: DENOSUMAB
     Indication: Product used for unknown indication
     Dosage: 60 MILLIGRAM, Q6MO
     Route: 058
  2. TREMFYA [Concomitant]
     Active Substance: GUSELKUMAB
     Dosage: UNK

REACTIONS (3)
  - Rheumatoid arthritis [Unknown]
  - Hypocalcaemia [Unknown]
  - Blood parathyroid hormone increased [Unknown]
